FAERS Safety Report 4761491-X (Version None)
Quarter: 2005Q3

REPORT INFORMATION
  Report Type: 
  Country: None (occurrence: None)
  Receive Date: 20050906
  Receipt Date: 20050225
  Transmission Date: 20060218
  Serious: Yes (Hospitalization)
  Sender: FDA-Public Use
  Company Number: FR-GLAXOSMITHKLINE-B0373268A

PATIENT
  Age: 3 Month
  Sex: Female

DRUGS (6)
  1. EPIVIR [Suspect]
     Indication: ANTIVIRAL PROPHYLAXIS
     Route: 048
  2. EPIVIR [Suspect]
     Indication: HIV INFECTION
  3. AGENERASE [Suspect]
     Indication: HIV INFECTION
  4. RETROVIR [Suspect]
     Indication: ANTIVIRAL PROPHYLAXIS
     Dates: start: 20041031, end: 20041031
  5. NORVIR [Suspect]
     Indication: HIV INFECTION
  6. VIREAD [Suspect]
     Indication: HIV INFECTION

REACTIONS (7)
  - BLOOD CREATINE PHOSPHOKINASE INCREASED [None]
  - BLOOD LACTIC ACID INCREASED [None]
  - CSF PROTEIN INCREASED [None]
  - DRUG EXPOSURE DURING PREGNANCY [None]
  - EYE MOVEMENT DISORDER [None]
  - LACRIMATION INCREASED [None]
  - NYSTAGMUS [None]
